FAERS Safety Report 7942115-7 (Version None)
Quarter: 2011Q4

REPORT INFORMATION
  Report Type: 
  Country: None (occurrence: None)
  Receive Date: 20111122
  Receipt Date: 20111122
  Transmission Date: 20120403
  Serious: Yes (Other)
  Sender: FDA-Public Use
  Company Number: None

PATIENT
  Age: 76 Year
  Sex: Male

DRUGS (2)
  1. FINASTERIDE [Suspect]
     Dosage: 5 MG 1X DAILY ORAL
     Route: 048
     Dates: start: 20111104, end: 20111109
  2. FINASTERIDE [Suspect]
     Indication: PROSTATOMEGALY
     Dosage: 5 MG 1X DAILY ORAL ; 5 MG 1X DAILY ORAL
     Route: 048
     Dates: start: 20111021, end: 20111103

REACTIONS (4)
  - DYSPNOEA [None]
  - TESTICULAR PAIN [None]
  - PRODUCT SUBSTITUTION ISSUE [None]
  - RASH [None]
